FAERS Safety Report 10099283 (Version 1)
Quarter: 2014Q2

REPORT INFORMATION
  Report Type: Spontaneous
  Country: US (occurrence: US)
  Receive Date: 20140423
  Receipt Date: 20140423
  Transmission Date: 20141212
  Serious: No
  Sender: FDA-Public Use
  Company Number: US-009507513-1404USA009327

PATIENT
  Sex: Female

DRUGS (3)
  1. PEGINTRON [Suspect]
     Indication: HEPATITIS C
     Dosage: FREQUENCY Q7DAYS
     Dates: start: 20140405
  2. REBETOL [Suspect]
     Indication: HEPATITIS C
     Dosage: FREQUENCY BID
     Route: 048
     Dates: start: 20140405
  3. SOVALDI [Concomitant]

REACTIONS (1)
  - Injection site erythema [Unknown]
